FAERS Safety Report 25595261 (Version 1)
Quarter: 2025Q3

REPORT INFORMATION
  Report Type: Report from Study
  Country: CA (occurrence: CA)
  Receive Date: 20250723
  Receipt Date: 20250723
  Transmission Date: 20251021
  Serious: Yes (Other)
  Sender: ABBVIE
  Company Number: CA-ABBVIE-6382315

PATIENT
  Age: 69 Year
  Sex: Female

DRUGS (1)
  1. SKYRIZI [Suspect]
     Active Substance: RISANKIZUMAB-RZAA
     Indication: Psoriasis
     Route: 058
     Dates: start: 2025

REACTIONS (5)
  - Arterial occlusive disease [Unknown]
  - Fatigue [Unknown]
  - Pain in extremity [Unknown]
  - Limb discomfort [Unknown]
  - Stress [Unknown]

NARRATIVE: CASE EVENT DATE: 20250101
